FAERS Safety Report 6252686-7 (Version None)
Quarter: 2009Q3

REPORT INFORMATION
  Report Type: 
  Country: None (occurrence: None)
  Receive Date: 20090701
  Receipt Date: 20090624
  Transmission Date: 20100115
  Serious: Yes (Hospitalization, Other)
  Sender: FDA-Public Use
  Company Number: AU-ASTRAZENECA-2009SE03310

PATIENT
  Age: 35 Year
  Sex: Female

DRUGS (8)
  1. ZD5077, SEROQUEL [Suspect]
     Route: 048
     Dates: start: 20090101
  2. ZD5077, SEROQUEL [Suspect]
     Route: 048
  3. ZD5077, SEROQUEL [Suspect]
     Route: 048
  4. ELEVIT [Concomitant]
     Indication: PROPHYLAXIS OF NEURAL TUBE DEFECT
     Route: 048
     Dates: end: 20090601
  5. DIAZEPAM [Concomitant]
     Indication: ANXIETY
     Route: 048
  6. DIAZEPAM [Concomitant]
     Route: 048
  7. MIRTAZAPINE [Concomitant]
     Indication: ANTIDEPRESSANT THERAPY
     Route: 048
     Dates: start: 20090201
  8. MIRTAZAPINE [Concomitant]
     Route: 048

REACTIONS (5)
  - CAESAREAN SECTION [None]
  - DRUG EXPOSURE DURING PREGNANCY [None]
  - HYPERTENSION [None]
  - PELVIC PROLAPSE [None]
  - PROLONGED LABOUR [None]
